FAERS Safety Report 5964685-0 (Version None)
Quarter: 2008Q4

REPORT INFORMATION
  Report Type: 
  Country: None (occurrence: None)
  Receive Date: 20081125
  Receipt Date: 20081113
  Transmission Date: 20090506
  Serious: Yes (Hospitalization, Other)
  Sender: FDA-Public Use
  Company Number: US-BAYER-US-2007-033088

PATIENT
  Age: 54 Year
  Sex: Male
  Weight: 86 kg

DRUGS (22)
  1. CAMPATH [Suspect]
     Indication: LIVER TRANSPLANT
     Dosage: UNIT DOSE: 30 MG
     Route: 042
     Dates: start: 20060522, end: 20060522
  2. CAMPATH [Suspect]
     Dosage: UNIT DOSE: 30 MG
     Route: 042
     Dates: start: 20060526, end: 20060526
  3. TACROLIMUS [Suspect]
     Indication: LIVER TRANSPLANT
     Dosage: UNIT DOSE: 6 MG
     Route: 048
     Dates: start: 20060523
  4. TACROLIMUS [Suspect]
     Dosage: TOTAL DAILY DOSE: 2 MG
     Route: 048
     Dates: start: 20080602
  5. TACROLIMUS [Suspect]
     Dosage: TOTAL DAILY DOSE: 3 MG
     Route: 048
     Dates: start: 20080410, end: 20080602
  6. TACROLIMUS [Suspect]
     Dosage: TOTAL DAILY DOSE: 3 MG
     Route: 048
     Dates: start: 20080129, end: 20080409
  7. FERROUS SULFATE [Concomitant]
  8. VALCYTE [Concomitant]
  9. LOPRESSOR [Concomitant]
  10. NYSTATIN [Concomitant]
  11. BACTRIM [Concomitant]
  12. PRILOSEC [Concomitant]
  13. NOVOLOG [Concomitant]
  14. PERCOCET [Concomitant]
     Dates: start: 20060529
  15. LANTUS [Concomitant]
     Dates: start: 20060525
  16. SIMETHICONE [Concomitant]
     Dates: start: 20060529
  17. LASIX [Concomitant]
     Dates: start: 20060530
  18. REGULAR INSULIN [Concomitant]
     Dates: start: 20060522
  19. NEXIUM [Concomitant]
     Dates: start: 20060530
  20. NIACIN [Concomitant]
     Dates: start: 20071127
  21. ASPIRIN [Concomitant]
     Dates: start: 20071127
  22. FLORINEF [Concomitant]
     Dates: start: 20060711

REACTIONS (2)
  - LIVER FUNCTION TEST ABNORMAL [None]
  - LIVER TRANSPLANT REJECTION [None]
